FAERS Safety Report 16571665 (Version 2)
Quarter: 2021Q3

REPORT INFORMATION
  Report Type: Report from Study
  Country: JP (occurrence: JP)
  Receive Date: 20190715
  Receipt Date: 20210728
  Transmission Date: 20211014
  Serious: Yes (Other)
  Sender: FDA-Public Use
  Company Number: JP-JNJFOC-20190711635

PATIENT

DRUGS (1)
  1. DOXIL [Suspect]
     Active Substance: DOXORUBICIN HYDROCHLORIDE
     Indication: FIBROMATOSIS
     Dosage: UNKNOWN
     Route: 042

REACTIONS (5)
  - Adverse event [Unknown]
  - Product use in unapproved indication [Unknown]
  - Neutropenia [Unknown]
  - Cardiac dysfunction [Unknown]
  - Off label use [Unknown]
